FAERS Safety Report 17549402 (Version 1)
Quarter: 2020Q1

REPORT INFORMATION
  Report Type: Spontaneous
  Country: US (occurrence: US)
  Receive Date: 20200317
  Receipt Date: 20200317
  Transmission Date: 20200409
  Serious: No
  Sender: FDA-Public Use
  Company Number: US-MYLANLABS-2020M1025438

PATIENT
  Age: 44 Year
  Sex: Male
  Weight: 77 kg

DRUGS (2)
  1. WARFARIN                           /00014802/ [Concomitant]
     Active Substance: WARFARIN
     Dosage: UNK
  2. VALACYCLOVIR [Suspect]
     Active Substance: VALACYCLOVIR HYDROCHLORIDE
     Indication: EPSTEIN-BARR VIRUS INFECTION
     Dosage: TWICE A WEEK
     Route: 048

REACTIONS (2)
  - Malaise [Not Recovered/Not Resolved]
  - Abdominal discomfort [Not Recovered/Not Resolved]

NARRATIVE: CASE EVENT DATE: 202002
